FAERS Safety Report 5006818-9 (Version None)
Quarter: 2006Q2

REPORT INFORMATION
  Report Type: 
  Country: None (occurrence: None)
  Receive Date: 20060516
  Receipt Date: 20060504
  Transmission Date: 20061013
  Serious: Yes (Hospitalization, Congenital Anomaly)
  Sender: FDA-Public Use
  Company Number: BR-2006-003629

PATIENT
  Age: 22 Year
  Sex: Female

DRUGS (1)
  1. BETAFERON 250 UG, 500 UG AND COPAXONE(BETAFERON (SH Y03967A)) INJECTIO [Suspect]
     Indication: RELAPSING-REMITTING MULTIPLE SCLEROSIS
     Dosage: 500 UG, EVERY 2D, SUBCUTANEOUS
     Route: 058
     Dates: start: 20040730, end: 20050902

REACTIONS (6)
  - CAESAREAN SECTION [None]
  - CEREBRAL VENTRICLE DILATATION [None]
  - CONGENITAL ANOMALY [None]
  - DRUG EXPOSURE DURING PREGNANCY [None]
  - PREMATURE LABOUR [None]
  - TREATMENT NONCOMPLIANCE [None]
